FAERS Safety Report 5807990-0 (Version None)
Quarter: 2008Q3

REPORT INFORMATION
  Report Type: 
  Country: None (occurrence: None)
  Receive Date: 20080711
  Receipt Date: 20080708
  Transmission Date: 20090109
  Serious: Yes (Hospitalization)
  Sender: FDA-Public Use
  Company Number: US-GILEAD-2008-0017072

PATIENT
  Sex: Female
  Weight: 61.29 kg

DRUGS (11)
  1. LETAIRIS [Suspect]
     Indication: PULMONARY ARTERIAL HYPERTENSION
     Dosage: 5 MG QD
     Route: 048
     Dates: start: 20071001
  2. ATRIPLA [Suspect]
     Dosage: 1 TABLET QD
     Route: 048
     Dates: start: 20071001
  3. ATAZANAVIR [Concomitant]
     Dosage: 300 MG EVERY EVENING
     Route: 048
  4. DIGOXIN [Concomitant]
     Dosage: 125 MCG QD
     Route: 048
  5. LEVOTHYROXINE SODIUM [Concomitant]
     Dosage: 150 MCG QD
     Route: 048
  6. RITONAVIR [Concomitant]
     Dosage: 100 MG QD
     Route: 048
  7. SILDENAFIL CITRATE [Concomitant]
     Dosage: 10 MG Q 12HRS
     Route: 048
  8. WARFARIN SODIUM [Concomitant]
     Route: 048
  9. WARFARIN SODIUM [Concomitant]
     Route: 048
  10. METRONIDAZOLE HCL [Concomitant]
     Dosage: 500 MG TID
     Route: 048
  11. MOXIFLOXACIN HCL [Concomitant]
     Dosage: 400 MG QD
     Route: 048

REACTIONS (4)
  - DYSPNOEA EXERTIONAL [None]
  - PLEURAL EFFUSION [None]
  - PNEUMONIA [None]
  - SUPRAVENTRICULAR TACHYCARDIA [None]
